FAERS Safety Report 8011506-0 (Version None)
Quarter: 2011Q4

REPORT INFORMATION
  Report Type: 
  Country: None (occurrence: None)
  Receive Date: 20111228
  Receipt Date: 20111220
  Transmission Date: 20120403
  Serious: Yes (Other)
  Sender: FDA-Public Use
  Company Number: US-PFIZER INC-2011156331

PATIENT
  Sex: Male
  Weight: 88.435 kg

DRUGS (6)
  1. RISPERIDONE [Suspect]
     Dosage: 0.5 MG, 3X/DAY
     Dates: start: 20110728
  2. CLONAZEPAM [Concomitant]
     Indication: ANXIETY
     Dosage: 1 MG, UNK
  3. FENTANYL [Concomitant]
     Indication: PAIN
     Dosage: 75 MCG, UNK
  4. VENLAFAXINE HCL [Suspect]
     Indication: DEPRESSION
     Dosage: 150 MG, 2 TABS DAILY
     Dates: start: 20110728
  5. EFFEXOR XR [Suspect]
     Indication: DEPRESSION
     Dosage: 450 MG, 1X/DAY
     Route: 048
     Dates: start: 20100601
  6. AMITRIPTYLINE [Concomitant]
     Indication: SLEEP DISORDER
     Dosage: UNK, 1X/DAY

REACTIONS (1)
  - WEIGHT INCREASED [None]
